FAERS Safety Report 5961555-9 (Version None)
Quarter: 2008Q4

REPORT INFORMATION
  Report Type: 
  Country: None (occurrence: None)
  Receive Date: 20081121
  Receipt Date: 20081118
  Transmission Date: 20090506
  Serious: Yes (Hospitalization)
  Sender: FDA-Public Use
  Company Number: B0539368A

PATIENT
  Age: 89 Year
  Sex: Female

DRUGS (4)
  1. ZOVIRAX [Suspect]
     Indication: HERPES ZOSTER
     Dosage: 250MG UNKNOWN
     Route: 042
     Dates: start: 20080916, end: 20080916
  2. VALTREX [Suspect]
     Indication: HERPES ZOSTER
     Dosage: 1800MG UNKNOWN
     Route: 048
     Dates: start: 20080916, end: 20080919
  3. AMLODIN [Concomitant]
     Indication: HYPERTENSION
     Dosage: 5MG PER DAY
     Route: 048
  4. LANSOPRAZOLE [Concomitant]
     Indication: DRUG USE FOR UNKNOWN INDICATION
     Dosage: 15MG PER DAY
     Route: 048

REACTIONS (6)
  - ACCIDENTAL OVERDOSE [None]
  - BLOOD CREATININE INCREASED [None]
  - BLOOD UREA INCREASED [None]
  - FACE OEDEMA [None]
  - NAUSEA [None]
  - RENAL IMPAIRMENT [None]
